FAERS Safety Report 4270010-6 (Version None)
Quarter: 2004Q1

REPORT INFORMATION
  Report Type: 
  Country: None (occurrence: None)
  Receive Date: 20040113
  Receipt Date: 20040113
  Transmission Date: 20041129
  Serious: Yes (Other)
  Sender: FDA-Public Use
  Company Number: None

PATIENT
  Age: 77 Year
  Sex: Male
  Weight: 86.637 kg

DRUGS (12)
  1. GLEEVEC [Suspect]
     Indication: SYSTEMIC MASTOCYTOSIS
     Dosage: 400 MG QD PO
     Route: 048
     Dates: start: 20031020, end: 20040108
  2. SARNA LOTION [Concomitant]
  3. DESOWEN LOTION [Concomitant]
  4. K-DUR 10 [Concomitant]
  5. LASIX [Concomitant]
  6. RHINOCORT [Concomitant]
  7. GASTROCOM [Concomitant]
  8. ZYRTEC [Concomitant]
  9. PREVACID [Concomitant]
  10. M.V.I. [Concomitant]
  11. EPIPEN [Concomitant]
  12. TYLENOL [Concomitant]

REACTIONS (5)
  - ACTIVATED PARTIAL THROMBOPLASTIN TIME PROLONGED [None]
  - FIBRIN D DIMER INCREASED [None]
  - HAEMARTHROSIS [None]
  - MUSCLE HAEMORRHAGE [None]
  - PROTHROMBIN TIME PROLONGED [None]
